FAERS Safety Report 8988296 (Version 2)
Quarter: 2013Q1

REPORT INFORMATION
  Report Type: Spontaneous
  Country: BE (occurrence: BE)
  Receive Date: 20121227
  Receipt Date: 20130117
  Transmission Date: 20140127
  Serious: Yes (Hospitalization, Other)
  Sender: FDA-Public Use
  Company Number: BE-BAYER-2012-134150

PATIENT
  Age: 75 Year
  Sex: Male

DRUGS (5)
  1. CIPROFLOXACIN BETAIN [Suspect]
     Indication: INFLAMMATION
     Dosage: UNK
     Dates: start: 201006
  2. CLINDAMYCIN [Suspect]
     Indication: MYCOTIC ANEURYSM
  3. CHOLESTEROL- AND TRIGLYCERIDE REDUCERS [Concomitant]
  4. ACETYLSALICYLIC ACID [Concomitant]
  5. CALCIUM CHANNEL BLOCKERS [Concomitant]

REACTIONS (3)
  - Medication error [None]
  - Intervertebral discitis [None]
  - Paraspinal abscess [None]
